FAERS Safety Report 11421096 (Version 3)
Quarter: 2015Q3

REPORT INFORMATION
  Report Type: Spontaneous
  Country: DE (occurrence: DE)
  Receive Date: 20150826
  Receipt Date: 20150903
  Transmission Date: 20151125
  Serious: Yes (Other)
  Sender: FDA-Public Use
  Company Number: DE-BAYER-2015-407903

PATIENT
  Sex: Male

DRUGS (2)
  1. XGEVA [Concomitant]
     Active Substance: DENOSUMAB
  2. XOFIGO [Suspect]
     Active Substance: RADIUM RA-223 DICHLORIDE
     Dosage: UNK
     Dates: start: 20150729, end: 20150729

REACTIONS (3)
  - Purulent discharge [None]
  - Unevaluable event [None]
  - Osteonecrosis of jaw [None]

NARRATIVE: CASE EVENT DATE: 201508
